FAERS Safety Report 12867308 (Version 1)
Quarter: 2016Q4

REPORT INFORMATION
  Report Type: Report from Study
  Country: None (occurrence: BR)
  Receive Date: 20161020
  Receipt Date: 20161020
  Transmission Date: 20170207
  Serious: Yes (Hospitalization)
  Sender: FDA-Public Use
  Company Number: BR-ABBVIE-16K-020-1756231-00

PATIENT
  Age: 55 Year
  Sex: Female

DRUGS (2)
  1. DIPYRONE [Suspect]
     Active Substance: DIPYRONE
     Indication: PAIN
     Route: 065
  2. HUMIRA [Suspect]
     Active Substance: ADALIMUMAB
     Indication: RHEUMATOID ARTHRITIS
     Route: 058
     Dates: start: 20150413

REACTIONS (8)
  - Musculoskeletal stiffness [Unknown]
  - Hospitalisation [Unknown]
  - Pain [Recovered/Resolved]
  - Swelling [Unknown]
  - Drug hypersensitivity [Unknown]
  - Erythema [Unknown]
  - Milk allergy [Unknown]
  - Limb discomfort [Unknown]

NARRATIVE: CASE EVENT DATE: 201607
